FAERS Safety Report 24578820 (Version 1)
Quarter: 2024Q4

REPORT INFORMATION
  Report Type: Spontaneous
  Country: US (occurrence: US)
  Receive Date: 20241105
  Receipt Date: 20241105
  Transmission Date: 20250115
  Serious: Yes (Other)
  Sender: MERCK
  Company Number: US-009507513-2410USA013498

PATIENT
  Sex: Female

DRUGS (1)
  1. MOLNUPIRAVIR [Suspect]
     Active Substance: MOLNUPIRAVIR
     Indication: COVID-19 treatment
     Dosage: 4 DOSAGE FORM
     Route: 048
     Dates: start: 2024, end: 2024

REACTIONS (3)
  - Immobile [Unknown]
  - Abdominal pain upper [Unknown]
  - Emotional distress [Unknown]

NARRATIVE: CASE EVENT DATE: 20240101
